FAERS Safety Report 9580464 (Version 1)
Quarter: 2013Q3

REPORT INFORMATION
  Report Type: Spontaneous
  Country: US (occurrence: None)
  Receive Date: 20130916
  Receipt Date: 20130916
  Transmission Date: 20140515
  Serious: Yes (Other)
  Sender: FDA-Public Use
  Company Number: JPI-P-026453

PATIENT
  Age: 11 Year
  Sex: Male
  Weight: 58.97 kg

DRUGS (4)
  1. XYREM [Suspect]
     Indication: CATAPLEXY
     Route: 048
     Dates: start: 20121103, end: 20121112
  2. METHYLPHENIDATE HYDROCHLORIDE [Concomitant]
  3. ZINC [Concomitant]
  4. VITAMINS [Concomitant]

REACTIONS (11)
  - Sleep apnoea syndrome [None]
  - Moaning [None]
  - Dyspnoea [None]
  - Vertigo [None]
  - Nausea [None]
  - Sensation of heaviness [None]
  - Mood altered [None]
  - Abdominal discomfort [None]
  - Somnolence [None]
  - Initial insomnia [None]
  - Middle insomnia [None]
